FAERS Safety Report 4775064-6 (Version None)
Quarter: 2005Q3

REPORT INFORMATION
  Report Type: 
  Country: None (occurrence: None)
  Receive Date: 20050920
  Receipt Date: 20050812
  Transmission Date: 20060218
  Serious: Yes (Hospitalization)
  Sender: FDA-Public Use
  Company Number: WAES 0507PHL00006

PATIENT
  Age: 69 Year
  Sex: Male

DRUGS (6)
  1. COZAAR [Suspect]
     Indication: CARDIAC FAILURE CONGESTIVE
     Dosage: PO
     Route: 048
     Dates: start: 20050112, end: 20050714
  2. ASPIRIN [Concomitant]
  3. DIGOXIN [Concomitant]
  4. FUROSEMIDE [Concomitant]
  5. PROPHYLTHIOURACIL [Concomitant]
  6. SPIRONOLACTONE [Suspect]

REACTIONS (12)
  - ACUTE PRERENAL FAILURE [None]
  - ANOREXIA [None]
  - AORTIC ATHEROSCLEROSIS [None]
  - ASTHENIA [None]
  - CARDIOMEGALY [None]
  - CRACKLES LUNG [None]
  - DYSPNOEA [None]
  - GASTROENTERITIS [None]
  - HAEMODIALYSIS [None]
  - HEART RATE IRREGULAR [None]
  - URINARY TRACT INFECTION [None]
  - UROSEPSIS [None]
